FAERS Safety Report 13030738 (Version 1)
Quarter: 2016Q4

REPORT INFORMATION
  Report Type: Spontaneous
  Country: NL (occurrence: NL)
  Receive Date: 20161215
  Receipt Date: 20161215
  Transmission Date: 20170207
  Serious: Yes (Hospitalization)
  Sender: FDA-Public Use
  Company Number: NL-ACTELION-A-CH2016-145912

PATIENT
  Age: 34 Year
  Sex: Male

DRUGS (5)
  1. TACROLIMUS. [Concomitant]
     Active Substance: TACROLIMUS
  2. TADALAFIL [Concomitant]
     Active Substance: TADALAFIL
  3. PREDNISONE. [Concomitant]
     Active Substance: PREDNISONE
  4. AMBRISENTAN [Concomitant]
     Active Substance: AMBRISENTAN
  5. VELETRI [Suspect]
     Active Substance: EPOPROSTENOL
     Indication: PULMONARY ARTERIAL HYPERTENSION
     Dosage: UNK
     Route: 042
     Dates: start: 200110

REACTIONS (5)
  - Staphylococcus test positive [Recovered/Resolved]
  - Streptococcus test positive [Recovered/Resolved]
  - Device related infection [Recovered/Resolved]
  - Bacteraemia [Recovered/Resolved]
  - Catheter management [Unknown]

NARRATIVE: CASE EVENT DATE: 20161116
